FAERS Safety Report 17812732 (Version 1)
Quarter: 2020Q2

REPORT INFORMATION
  Report Type: Spontaneous
  Country: US (occurrence: US)
  Receive Date: 20200521
  Receipt Date: 20200521
  Transmission Date: 20200714
  Serious: No
  Sender: FDA-Public Use
  Company Number: None

PATIENT
  Age: 74 Year
  Sex: Female
  Weight: 57.6 kg

DRUGS (5)
  1. VITAMIN D3 [Concomitant]
     Active Substance: CHOLECALCIFEROL
  2. LETROZOLE 2.5MG [Concomitant]
     Active Substance: LETROZOLE
  3. LOSARTAN 25MG [Concomitant]
     Active Substance: LOSARTAN
  4. ALEVA [Concomitant]
     Active Substance: EBASTINE
  5. IBRANCE [Suspect]
     Active Substance: PALBOCICLIB
     Indication: BREAST CANCER
     Route: 048
     Dates: start: 20180813

REACTIONS (3)
  - Fluid retention [None]
  - Pain [None]
  - Fatigue [None]

NARRATIVE: CASE EVENT DATE: 20200521
